FAERS Safety Report 25741464 (Version 2)
Quarter: 2025Q3

REPORT INFORMATION
  Report Type: Report from Study
  Country: CA (occurrence: CA)
  Receive Date: 20250829
  Receipt Date: 20250831
  Transmission Date: 20251021
  Serious: No
  Sender: ABBVIE
  Company Number: CA-ABBVIE-6434978

PATIENT
  Age: 56 Year
  Sex: Female

DRUGS (3)
  1. RINVOQ [Suspect]
     Active Substance: UPADACITINIB
     Indication: Rheumatoid arthritis
     Route: 048
  2. CELEBREX [Concomitant]
     Active Substance: CELECOXIB
     Indication: Product used for unknown indication
  3. LEFLUNOMIDE [Concomitant]
     Active Substance: LEFLUNOMIDE
     Indication: Product used for unknown indication

REACTIONS (5)
  - Hypoacusis [Unknown]
  - Rheumatoid arthritis [Unknown]
  - Peripheral swelling [Unknown]
  - Fall [Unknown]
  - Ligament disorder [Unknown]

NARRATIVE: CASE EVENT DATE: 20250101
